FAERS Safety Report 15098597 (Version 1)
Quarter: 2018Q3

REPORT INFORMATION
  Report Type: Spontaneous
  Country: IT (occurrence: IT)
  Receive Date: 20180702
  Receipt Date: 20180702
  Transmission Date: 20181010
  Serious: Yes (Hospitalization)
  Sender: FDA-Public Use
  Company Number: IT-TEVA-2018-IT-918155

PATIENT
  Age: 70 Year
  Sex: Female

DRUGS (5)
  1. BISOPROLOL [Suspect]
     Active Substance: BISOPROLOL
     Indication: HYPERTENSION
     Route: 048
     Dates: start: 20170101, end: 20170714
  2. NORVASC [Suspect]
     Active Substance: AMLODIPINE BESYLATE
     Indication: HYPERTENSION
     Route: 048
     Dates: start: 20170101, end: 20170714
  3. ZUGLIMET [Concomitant]
     Active Substance: METFORMIN HYDROCHLORIDE
  4. AMARYL [Concomitant]
     Active Substance: GLIMEPIRIDE
  5. DAPAROX [Concomitant]
     Active Substance: PAROXETINE HYDROCHLORIDE

REACTIONS (3)
  - Hypotension [Unknown]
  - Dyspnoea [Unknown]
  - Orthostatic hypotension [Unknown]

NARRATIVE: CASE EVENT DATE: 20170714
